FAERS Safety Report 15351467 (Version 1)
Quarter: 2018Q3

REPORT INFORMATION
  Report Type: Spontaneous
  Country: BE (occurrence: BE)
  Receive Date: 20180905
  Receipt Date: 20180905
  Transmission Date: 20181010
  Serious: Yes (Other)
  Sender: FDA-Public Use
  Company Number: BE-009507513-1808BEL012721

PATIENT
  Age: 66 Year
  Sex: Female
  Weight: 70 kg

DRUGS (5)
  1. L?THYROXIN [Concomitant]
     Active Substance: LEVOTHYROXINE SODIUM
     Dosage: 50 MICROGRAM, 1X/DAY
     Route: 048
  2. KEYTRUDA [Suspect]
     Active Substance: PEMBROLIZUMAB
     Indication: NON-SMALL CELL LUNG CANCER
     Dosage: 200 MG, EVERY 3 WEEKS
     Route: 042
     Dates: start: 20170823, end: 20180517
  3. SIMVASTATIN. [Concomitant]
     Active Substance: SIMVASTATIN
     Dosage: 20 MG, 1X/DAY
     Route: 048
  4. NORTRILEN [Concomitant]
     Active Substance: NORTRIPTYLINE
     Dosage: 25 MG, 2X/DAY
     Route: 048
  5. CACIT VITAMINE D3 [Concomitant]
     Active Substance: CALCIUM CARBONATE\CHOLECALCIFEROL
     Dosage: 1000/880, 1X/DAY
     Route: 048

REACTIONS (2)
  - Fatigue [Unknown]
  - Lung cyst [Recovering/Resolving]

NARRATIVE: CASE EVENT DATE: 201805
